FAERS Safety Report 17095691 (Version 1)
Quarter: 2019Q4

REPORT INFORMATION
  Report Type: Report from Study
  Country: US (occurrence: US)
  Receive Date: 20191201
  Receipt Date: 20191201
  Transmission Date: 20200122
  Serious: No
  Sender: FDA-Public Use
  Company Number: NVSC2019US052101

PATIENT
  Sex: Male

DRUGS (2)
  1. COSENTYX [Suspect]
     Active Substance: SECUKINUMAB
     Indication: PRODUCT USED FOR UNKNOWN INDICATION
     Route: 065
  2. COSENTYX [Suspect]
     Active Substance: SECUKINUMAB
     Dosage: 300 MG, Q4W (BATCH NUMBER WAS NOT REPORTED)
     Route: 065

REACTIONS (5)
  - Gait disturbance [Unknown]
  - Dysstasia [Unknown]
  - Sleep disorder [Unknown]
  - Breakthrough pain [Not Recovered/Not Resolved]
  - Back pain [Recovering/Resolving]
